FAERS Safety Report 8947723 (Version 1)
Quarter: 2012Q4

REPORT INFORMATION
  Report Type: Spontaneous
  Country: GB (occurrence: None)
  Receive Date: 20121127
  Receipt Date: 20121127
  Transmission Date: 20130627
  Serious: Yes (Disabling)
  Sender: FDA-Public Use
  Company Number: 2012-6688

PATIENT
  Age: 45 Year
  Sex: Male

DRUGS (4)
  1. DYSPORT [Suspect]
     Indication: SPASTICITY
     Dosage: 250 Units (250 Units,1 in 1 Cycle(s))
     Route: 030
     Dates: start: 20120706, end: 20120706
  2. BACLOFEN [Concomitant]
  3. SENNA (SENNA ALEXANDRINA) [Concomitant]
  4. MOVICOL [Concomitant]

REACTIONS (3)
  - Multiple sclerosis relapse [None]
  - Rash generalised [None]
  - Rash pruritic [None]
